FAERS Safety Report 9002584 (Version 2)
Quarter: 2013Q1

REPORT INFORMATION
  Report Type: Report from Study
  Country: US (occurrence: US)
  Receive Date: 20130107
  Receipt Date: 20130110
  Transmission Date: 20140127
  Serious: Yes (Hospitalization, Other)
  Sender: FDA-Public Use
  Company Number: US-VERTEX PHARMACEUTICALS INC.-2013-000185

PATIENT
  Sex: Male
  Weight: 158 kg

DRUGS (5)
  1. VX-950 (TELAPREVIR) [Suspect]
     Indication: HEPATITIS C
     Dosage: 750 MG, BID
     Route: 048
     Dates: start: 201210, end: 201212
  2. PEGASYS [Suspect]
     Indication: HEPATITIS C
     Dosage: 180 ?G, UNK
  3. RIBAVIRIN [Suspect]
     Indication: HEPATITIS C
     Dosage: 200 MG, BID
     Route: 048
  4. BLOOD THINNER [Concomitant]
  5. NITRO PATCH [Concomitant]

REACTIONS (10)
  - Constipation [Unknown]
  - Renal impairment [Unknown]
  - Anaemia [Unknown]
  - Renal pain [Unknown]
  - Groin pain [Unknown]
  - Arthralgia [Unknown]
  - Pain in extremity [Unknown]
  - Dental caries [Unknown]
  - Gingival discolouration [Unknown]
  - Pruritus [Unknown]
